FAERS Safety Report 4646187-7 (Version None)
Quarter: 2005Q2

REPORT INFORMATION
  Report Type: 
  Country: None (occurrence: None)
  Receive Date: 20050422
  Receipt Date: 20050422
  Transmission Date: 20051028
  Serious: No
  Sender: FDA-Public Use
  Company Number: None

PATIENT
  Age: 76 Year
  Sex: Female
  Weight: 61.1 kg

DRUGS (7)
  1. ZOSYN [Suspect]
     Indication: CELLULITIS
     Dosage: 2.25G   Q8H    INTRAVENOU
     Route: 042
     Dates: start: 20050302, end: 20050325
  2. ZOSYN [Suspect]
     Indication: PNEUMONIA
     Dosage: 2.25G   Q8H    INTRAVENOU
     Route: 042
     Dates: start: 20050302, end: 20050325
  3. MOTRIN [Concomitant]
  4. ZOFRAN [Concomitant]
  5. PROTONIX [Concomitant]
  6. AMBIEN [Concomitant]
  7. BENADRYL [Concomitant]

REACTIONS (1)
  - NEPHRITIS INTERSTITIAL [None]
